FAERS Safety Report 8806452 (Version 1)
Quarter: 2012Q4

REPORT INFORMATION
  Report Type: Report from Study
  Country: GB (occurrence: GB)
  Receive Date: 20120925
  Receipt Date: 20120925
  Transmission Date: 20130627
  Serious: Yes (Death)
  Sender: FDA-Public Use
  Company Number: GB-GENZYME-MOZO-1000751

PATIENT
  Age: 62 Year
  Sex: Male
  Weight: 80 kg

DRUGS (12)
  1. MOZOBIL [Suspect]
     Indication: ACUTE MYELOID LEUKAEMIA
     Dosage: First cycle
     Route: 058
  2. MOZOBIL [Suspect]
     Dosage: 240 mcg/kg, qd (second cycle), dosage interval:1 day
     Route: 058
     Dates: start: 20111110, end: 20111216
  3. EVOLTRA [Suspect]
     Indication: ACUTE MYELOID LEUKAEMIA
     Dosage: First cycle
     Route: 042
  4. EVOLTRA [Suspect]
     Dosage: 20 mg/m2, qd (second cycle), dosage interval: 1 day
     Route: 042
     Dates: start: 20111110, end: 20111216
  5. DAUNORUBICIN HYDROCHLORIDE [Suspect]
     Indication: ACUTE MYELOID LEUKAEMIA
     Dosage: First cycle
     Route: 042
  6. DAUNORUBICIN HYDROCHLORIDE [Suspect]
     Dosage: 50 mg/m2, qd (second cycle), doasge interval: 1 day
     Route: 042
     Dates: start: 20111110, end: 20111216
  7. DIGOXIN [Concomitant]
     Indication: TACHYCARDIA
     Dosage: 125-250, dosage interval: 2 day
     Route: 048
     Dates: start: 20120203, end: 20120207
  8. DILTIAZEM [Concomitant]
     Indication: HYPERTENSION
     Dosage: 46-60 mg, dosage interval: 2 day
     Route: 048
     Dates: start: 20120208, end: 20120209
  9. BISOPROLOL [Concomitant]
     Indication: HYPERTENSION
     Dosage: 4-10, dosage interval: 1 day
     Route: 048
     Dates: start: 20120202, end: 20120228
  10. HYDROCHLOROTHIAZIDE [Concomitant]
     Indication: HYPERTENSION
     Dosage: 4-10, doasge interval: 1 day
     Route: 048
     Dates: start: 20120202, end: 20120228
  11. MEROPENEM TRIHYDRATE [Concomitant]
     Indication: FEBRILE NEUTROPENIA
     Dosage: 1 g, dosage interval: 3 day
     Route: 042
     Dates: start: 20120130, end: 20120206
  12. FLUCONAZOLE [Concomitant]
     Indication: PRODUCT USED FOR UNKNOWN INDICATION
     Dosage: 100 mg, UNK
     Route: 065

REACTIONS (1)
  - Pancytopenia [Fatal]
